FAERS Safety Report 23161982 (Version 3)
Quarter: 2025Q4

REPORT INFORMATION
  Report Type: Spontaneous
  Country: US (occurrence: US)
  Receive Date: 20231109
  Receipt Date: 20251024
  Transmission Date: 20260118
  Serious: No
  Sender: SECURA BIO
  Company Number: US-SECURA BIO, INC.-2023-SECUR-US000072

PATIENT

DRUGS (1)
  1. COPIKTRA [Suspect]
     Active Substance: DUVELISIB
     Indication: Anaplastic large cell lymphoma T- and null-cell types
     Dosage: 25 MG, BID
     Route: 048
     Dates: start: 20230412

REACTIONS (2)
  - Product dose omission issue [Unknown]
  - Product use in unapproved indication [Unknown]

NARRATIVE: CASE EVENT DATE: 20230412
